FAERS Safety Report 25551511 (Version 1)
Quarter: 2025Q3

REPORT INFORMATION
  Report Type: Spontaneous
  Country: US (occurrence: US)
  Receive Date: 20250714
  Receipt Date: 20250714
  Transmission Date: 20251021
  Serious: Yes (Hospitalization, Other)
  Sender: PFIZER
  Company Number: US-PFIZER INC-PV202400100265

PATIENT
  Age: 79 Year
  Sex: Male

DRUGS (1)
  1. TALZENNA [Suspect]
     Active Substance: TALAZOPARIB TOSYLATE

REACTIONS (4)
  - Cerebrovascular accident [Unknown]
  - Urinary tract infection [Unknown]
  - Deafness [Unknown]
  - Alopecia [Unknown]
